FAERS Safety Report 4914265-0 (Version None)
Quarter: 2006Q1

REPORT INFORMATION
  Report Type: 
  Country: None (occurrence: None)
  Receive Date: 20060213
  Receipt Date: 20060209
  Transmission Date: 20060701
  Serious: Yes (Hospitalization, Other)
  Sender: FDA-Public Use
  Company Number: URSO-2005-041

PATIENT
  Age: 82 Year
  Sex: Female

DRUGS (17)
  1. URSO                                  (URSODESOXYCHOLIC ACID) [Suspect]
     Indication: BILIARY CIRRHOSIS PRIMARY
     Dosage: 600 MG PO
     Route: 048
     Dates: start: 20010725
  2. OMEPRAZOLE [Concomitant]
  3. GASMOTIN (MOSAPRIDE CITRATE) [Concomitant]
  4. ALLOID G (SODIUM ALGINATE) [Concomitant]
  5. FERROMIA (SODIUM FERROUS CITRATE) [Concomitant]
  6. POSTERISAN (COLI-ANTIGEN, HYDROCORTISONE) [Concomitant]
  7. AMOBAN  (ZOPICLONE) [Concomitant]
  8. NORVASC [Concomitant]
  9. EVOXAC [Concomitant]
  10. LOSARTAN POTASSIUM [Concomitant]
  11. LIVACT (ISOLEUCINE, LEUCINE, VALINE) [Concomitant]
  12. DEXALTIN (DEXAMETHASONE) [Concomitant]
  13. LEVOFLOXACIN [Concomitant]
  14. SP (DEQUALINIUM CHLORIDE) [Concomitant]
  15. ANDERM (BUFEXAMAC) [Concomitant]
  16. AZUNOL (AZULENE) [Concomitant]
  17. MUCODYNE (CARBOCISTEINE) [Concomitant]

REACTIONS (6)
  - EPISTAXIS [None]
  - HAEMATEMESIS [None]
  - HAEMORRHOIDAL HAEMORRHAGE [None]
  - IRON DEFICIENCY ANAEMIA [None]
  - OESOPHAGEAL VARICES HAEMORRHAGE [None]
  - REFLUX OESOPHAGITIS [None]
